FAERS Safety Report 7979880-9 (Version None)
Quarter: 2011Q4

REPORT INFORMATION
  Report Type: 
  Country: None (occurrence: None)
  Receive Date: 20111201
  Receipt Date: 20111115
  Transmission Date: 20120403
  Serious: Yes (Other)
  Sender: FDA-Public Use
  Company Number: 2011SP054746

PATIENT
  Sex: Female

DRUGS (2)
  1. CHEMOTHERAPY [Suspect]
     Indication: PRODUCT USED FOR UNKNOWN INDICATION
  2. MIRALAX [Suspect]
     Indication: CONSTIPATION
     Dosage: ONCE; PO
     Route: 048
     Dates: start: 20111114

REACTIONS (3)
  - HEART RATE INCREASED [None]
  - PHARYNGEAL OEDEMA [None]
  - RASH GENERALISED [None]
